FAERS Safety Report 5038054-4 (Version None)
Quarter: 2006Q2

REPORT INFORMATION
  Report Type: 
  Country: None (occurrence: None)
  Receive Date: 20060531
  Receipt Date: 20021205
  Transmission Date: 20061013
  Serious: Yes (Other)
  Sender: FDA-Public Use
  Company Number: CVAT2002US00828

PATIENT
  Age: 69 Year
  Sex: Male

DRUGS (2)
  1. VOLTAREN [Suspect]
     Indication: CATARACT OPERATION
     Dosage: 1 GTT, QID, TOPICAL OPHTH.
     Route: 047
     Dates: start: 20020917, end: 20020923
  2. QUIXIN [Concomitant]

REACTIONS (3)
  - CORNEAL PERFORATION [None]
  - CORNEAL THINNING [None]
  - CORNEAL TRANSPLANT [None]
